FAERS Safety Report 8851246 (Version 1)
Quarter: 2012Q4

REPORT INFORMATION
  Report Type: 
  Country: SE (occurrence: SE)
  Receive Date: 20121019
  Receipt Date: 20121019
  Transmission Date: 20130627
  Serious: Yes (Hospitalization)
  Sender: FDA-Public Use
  Company Number: SE-BAYER-2012-106036

PATIENT
  Age: 37 Year
  Sex: Female
  Weight: 15.87 kg

DRUGS (1)
  1. MIRENA [Suspect]
     Indication: CONTRACEPTION
     Dosage: 20 mcg/24hr, CONT
     Route: 015
     Dates: start: 20120924, end: 20120928

REACTIONS (2)
  - Menstrual disorder [None]
  - Haemoglobin decreased [Not Recovered/Not Resolved]
